FAERS Safety Report 25451038 (Version 1)
Quarter: 2025Q2

REPORT INFORMATION
  Report Type: Spontaneous
  Country: DE (occurrence: DE)
  Receive Date: 20250618
  Receipt Date: 20250618
  Transmission Date: 20250717
  Serious: Yes (Hospitalization, Congenital Anomaly)
  Sender: TEVA
  Company Number: DE-EMB-M202400137-1

PATIENT
  Sex: Male
  Weight: 3.2 kg

DRUGS (3)
  1. ESCITALOPRAM [Suspect]
     Active Substance: ESCITALOPRAM OXALATE
     Indication: Panic disorder
     Dosage: IMPRECISE DATA ON DOSAGE (PRESUMABLY DOSAGE DECREASED FROM 10 MG/D TO 5 MG/D AFTER THE 6TH MONTH ...
     Route: 064
  2. ESCITALOPRAM [Suspect]
     Active Substance: ESCITALOPRAM OXALATE
     Indication: Panic disorder
     Route: 064
  3. PERTUSSIS VACCINE [Concomitant]
     Active Substance: PERTUSSIS VACCINE
     Indication: Immunisation
     Route: 064

REACTIONS (2)
  - Oesophageal atresia [Recovered/Resolved with Sequelae]
  - Foetal exposure during pregnancy [Unknown]

NARRATIVE: CASE EVENT DATE: 20240801
